FAERS Safety Report 5016900-8 (Version None)
Quarter: 2006Q2

REPORT INFORMATION
  Report Type: 
  Country: None (occurrence: None)
  Receive Date: 20060526
  Receipt Date: 20060515
  Transmission Date: 20061013
  Serious: Yes (Other)
  Sender: FDA-Public Use
  Company Number: JP200603001893

PATIENT
  Age: 73 Year
  Sex: Male

DRUGS (2)
  1. GEMZAR [Suspect]
     Indication: PANCREATIC CARCINOMA
     Dosage: 800 MG/M2, INTRAVENOUS
     Route: 042
  2. NASEA (RAMOSETRON HYDROCHLORIDE) [Concomitant]

REACTIONS (2)
  - CEREBRAL INFARCTION [None]
  - GAIT DISTURBANCE [None]
